FAERS Safety Report 12851626 (Version 2)
Quarter: 2016Q4

REPORT INFORMATION
  Report Type: Spontaneous
  Country: US (occurrence: US)
  Receive Date: 20161017
  Receipt Date: 20161121
  Transmission Date: 20170207
  Serious: No
  Sender: FDA-Public Use
  Company Number: US-JNJFOC-20160823125

PATIENT
  Age: 74 Year
  Sex: Female

DRUGS (12)
  1. LEVOTHYROXINE. [Concomitant]
     Active Substance: LEVOTHYROXINE
     Indication: HYPOTHYROIDISM
     Route: 048
  2. IMBRUVICA [Suspect]
     Active Substance: IBRUTINIB
     Indication: ACUTE LEUKAEMIA
     Route: 048
     Dates: start: 20160728, end: 20161101
  3. SERTRALINE HCL [Concomitant]
     Active Substance: SERTRALINE HYDROCHLORIDE
     Indication: AFFECTIVE DISORDER
     Route: 048
  4. CLONAZEPAM. [Concomitant]
     Active Substance: CLONAZEPAM
     Indication: AFFECTIVE DISORDER
     Route: 048
     Dates: start: 2006
  5. METOPROLOL. [Concomitant]
     Active Substance: METOPROLOL
     Indication: BLOOD PRESSURE MEASUREMENT
     Route: 048
  6. PROGESTERONE. [Concomitant]
     Active Substance: PROGESTERONE
     Indication: HORMONE REPLACEMENT THERAPY
     Route: 048
     Dates: start: 2014
  7. ASPRIN [Concomitant]
     Active Substance: ASPIRIN
     Indication: CARDIAC DISORDER
     Route: 048
  8. ESTROGEN [Concomitant]
     Active Substance: ESTRONE\SUS SCROFA OVARY
     Indication: HORMONE REPLACEMENT THERAPY
     Dosage: UNK
  9. IMBRUVICA [Suspect]
     Active Substance: IBRUTINIB
     Indication: CHRONIC LYMPHOCYTIC LEUKAEMIA
     Route: 048
     Dates: start: 20160728, end: 20161101
  10. LEVOTHYROXINE. [Concomitant]
     Active Substance: LEVOTHYROXINE
     Indication: HYPOTHYROIDISM
     Route: 048
  11. BUPROPION. [Concomitant]
     Active Substance: BUPROPION
     Indication: AFFECTIVE DISORDER
     Route: 048
     Dates: start: 2006
  12. TELMISARTAN. [Concomitant]
     Active Substance: TELMISARTAN
     Route: 048

REACTIONS (6)
  - Somnolence [Not Recovered/Not Resolved]
  - Pain [Unknown]
  - White blood cell count increased [Unknown]
  - Diarrhoea [Not Recovered/Not Resolved]
  - Gastrooesophageal reflux disease [Unknown]
  - Off label use [Unknown]

NARRATIVE: CASE EVENT DATE: 201608
